FAERS Safety Report 4808619-0 (Version None)
Quarter: 2005Q4

REPORT INFORMATION
  Report Type: 
  Country: None (occurrence: None)
  Receive Date: 20051021
  Receipt Date: 20050105
  Transmission Date: 20060501
  Serious: No
  Sender: FDA-Public Use
  Company Number: DE_050115000

PATIENT
  Age: 37 Year
  Sex: Female
  Weight: 75 kg

DRUGS (5)
  1. ZYPREXA [Suspect]
     Indication: SCHIZOAFFECTIVE DISORDER
     Dosage: 15 MG DAY
  2. ERGENYL CHRONO [Concomitant]
  3. MIRTAZAPINE [Concomitant]
  4. ATOSIL (ISOPROMETHAZINE HYDROCHLORIDE) [Concomitant]
  5. DEPO-CLINOVIR (MEDROXYPROGESTERONE) [Concomitant]

REACTIONS (4)
  - BLOOD CREATINE PHOSPHOKINASE INCREASED [None]
  - BLOOD CREATINE PHOSPHOKINASE MB INCREASED [None]
  - CONDITION AGGRAVATED [None]
  - WHITE BLOOD CELL COUNT INCREASED [None]
